FAERS Safety Report 4341087-4 (Version None)
Quarter: 2004Q2

REPORT INFORMATION
  Report Type: 
  Country: None (occurrence: None)
  Receive Date: 20040405
  Receipt Date: 20040405
  Transmission Date: 20050107
  Serious: No
  Sender: FDA-Public Use
  Company Number: None

PATIENT
  Age: 51 Year
  Sex: Female

DRUGS (1)
  1. APLISOL PPD  AVENTIS [Suspect]

REACTIONS (2)
  - BURNING SENSATION [None]
  - RASH PRURITIC [None]
